FAERS Safety Report 25472723 (Version 1)
Quarter: 2025Q2

REPORT INFORMATION
  Report Type: Spontaneous
  Country: US (occurrence: US)
  Receive Date: 20250624
  Receipt Date: 20250624
  Transmission Date: 20250717
  Serious: Yes (Death, Other)
  Sender: JOHNSON AND JOHNSON
  Company Number: US-JNJFOC-20250627005

PATIENT

DRUGS (1)
  1. CILTACABTAGENE AUTOLEUCEL [Suspect]
     Active Substance: CILTACABTAGENE AUTOLEUCEL
     Indication: Plasma cell myeloma
     Route: 065

REACTIONS (15)
  - Bacteraemia [Fatal]
  - Systemic mycosis [Fatal]
  - Immune effector cell-associated neurotoxicity syndrome [Unknown]
  - Cytokine release syndrome [Unknown]
  - Neutropenia [Unknown]
  - Parkinsonism [Unknown]
  - Bell^s palsy [Unknown]
  - Guillain-Barre syndrome [Unknown]
  - Acute myeloid leukaemia [Unknown]
  - Myelodysplastic syndrome [Unknown]
  - Adenocarcinoma of colon [Unknown]
  - Haemophagocytic lymphohistiocytosis [Unknown]
  - Cytomegalovirus viraemia [Unknown]
  - Thrombocytopenia [Unknown]
  - Hypofibrinogenaemia [Unknown]
